FAERS Safety Report 6028020-4 (Version None)
Quarter: 2008Q4

REPORT INFORMATION
  Report Type: 
  Country: None (occurrence: None)
  Receive Date: 20081224
  Receipt Date: 20081216
  Transmission Date: 20090506
  Serious: Yes (Other)
  Sender: FDA-Public Use
  Company Number: CHPA2008GB22516

PATIENT
  Sex: Male

DRUGS (3)
  1. SCOPODERM TTS (NCH)(HYOSCINE HYDROBROMIDE) MEMBRANE CONT. TRANS THERAP [Suspect]
     Indication: SALIVARY HYPERSECRETION
     Dosage: 1.5 MG, UNK, TRANSDERMAL, 1.5MG, UNK, TRANSDERMAL
     Route: 062
     Dates: start: 20081211, end: 20081213
  2. SCOPODERM TTS (NCH)(HYOSCINE HYDROBROMIDE) MEMBRANE CONT. TRANS THERAP [Suspect]
     Indication: SALIVARY HYPERSECRETION
     Dosage: 1.5 MG, UNK, TRANSDERMAL, 1.5MG, UNK, TRANSDERMAL
     Route: 062
     Dates: start: 20081211
  3. VALPROATE SODIUM [Concomitant]

REACTIONS (3)
  - CONVULSION [None]
  - INCORRECT DOSE ADMINISTERED [None]
  - OFF LABEL USE [None]
